FAERS Safety Report 9631433 (Version 2)
Quarter: 2013Q4

REPORT INFORMATION
  Report Type: Spontaneous
  Country: US (occurrence: US)
  Receive Date: 20131018
  Receipt Date: 20131018
  Transmission Date: 20140711
  Serious: Yes (Other)
  Sender: FDA-Public Use
  Company Number: US-SANOFI-AVENTIS-2013SA092075

PATIENT
  Age: 65 Year
  Sex: Female
  Weight: 87.08 kg

DRUGS (2)
  1. ALLEGRA-D [Suspect]
     Indication: HYPERSENSITIVITY
     Dosage: 60/120MG
     Route: 048
  2. ALLEGRA-D [Suspect]
     Indication: ASTHMA
     Dosage: 60/120MG
     Route: 048

REACTIONS (7)
  - Bradycardia [Unknown]
  - Visual impairment [Unknown]
  - Anger [Unknown]
  - Pain [Unknown]
  - Cough [Unknown]
  - Sneezing [Unknown]
  - Dyspnoea [Unknown]
